FAERS Safety Report 10050743 (Version 1)
Quarter: 2014Q2

REPORT INFORMATION
  Report Type: Spontaneous
  Country: US (occurrence: US)
  Receive Date: 20140401
  Receipt Date: 20140401
  Transmission Date: 20141212
  Serious: No
  Sender: FDA-Public Use
  Company Number: US-ASTRAZENECA-2013SE74698

PATIENT
  Age: 73 Year
  Sex: Female
  Weight: 48.5 kg

DRUGS (2)
  1. NEXIUM [Suspect]
     Indication: GASTROOESOPHAGEAL REFLUX DISEASE
     Route: 048
     Dates: start: 2002, end: 2010
  2. NEXIUM [Suspect]
     Indication: PHARYNGEAL EROSION
     Route: 048
     Dates: start: 2002, end: 2010

REACTIONS (5)
  - Pharyngeal erosion [Unknown]
  - Dysphagia [Unknown]
  - Gastric ulcer [Unknown]
  - Seasonal allergy [Unknown]
  - Intentional product misuse [Unknown]
